FAERS Safety Report 7009596-7 (Version None)
Quarter: 2010Q3

REPORT INFORMATION
  Report Type: 
  Country: None (occurrence: None)
  Receive Date: 20100923
  Receipt Date: 20100914
  Transmission Date: 20110219
  Serious: Yes (Disabling, Other)
  Sender: FDA-Public Use
  Company Number: JP-PFIZER INC-2010116240

PATIENT
  Age: 78 Year
  Sex: Female
  Weight: 46 kg

DRUGS (10)
  1. NORVASC [Suspect]
     Indication: HYPERTENSION
     Dosage: 5 MG, 1X/DAY
     Route: 048
     Dates: end: 20080811
  2. NAUZELIN [Suspect]
     Indication: NAUSEA
     Dosage: 10 MG, 3X/DAY
     Route: 048
     Dates: end: 20080707
  3. REQUIP [Suspect]
     Indication: PARKINSON'S DISEASE
     Dosage: 1 MG, 3X/DAY
     Route: 048
     Dates: start: 20070801, end: 20080123
  4. CARBIDOPA AND LEVODOPA [Concomitant]
     Indication: PARKINSON'S DISEASE
     Dosage: 300 MG, 2X/DAY
     Route: 048
     Dates: end: 20080707
  5. TAKA-DIASTASE [Concomitant]
     Indication: NAUSEA
     Dosage: 1.3 G, 3X/DAY
     Route: 048
  6. SELEGILINE HYDROCHLORIDE [Concomitant]
     Indication: PARKINSON'S DISEASE
     Dosage: 2.5 MG, 2X/DAY
     Route: 048
  7. VITAMEDIN CAPSULE [Concomitant]
     Indication: MALAISE
     Dosage: 1 DF, 3X/DAY
     Route: 048
     Dates: end: 20080811
  8. ALINAMIN [Concomitant]
     Indication: MALAISE
     Dosage: 25 MG, 3X/DAY
     Route: 048
  9. JUVELA [Concomitant]
     Indication: MALAISE
     Dosage: 100 MG, 3X/DAY
     Route: 048
     Dates: end: 20080811
  10. MUCOSTA [Concomitant]
     Indication: NAUSEA
     Dosage: 100 MG, 3X/DAY
     Route: 048
     Dates: end: 20080811

REACTIONS (1)
  - PARKINSON'S DISEASE [None]
